FAERS Safety Report 5565118-9 (Version None)
Quarter: 2007Q4

REPORT INFORMATION
  Report Type: 
  Country: None (occurrence: None)
  Receive Date: 20071218
  Receipt Date: 20071213
  Transmission Date: 20080405
  Serious: Yes (Hospitalization)
  Sender: FDA-Public Use
  Company Number: US-ASTRAZENECA-2007UW28279

PATIENT
  Age: 64 Year
  Sex: Male
  Weight: 113.4 kg

DRUGS (12)
  1. SYMBICORT [Suspect]
     Indication: EMPHYSEMA
     Dosage: 80/4.5 UG - 2 INHALATIONS TWICE DAILY
     Route: 055
     Dates: start: 20070101
  2. SYMBICORT [Suspect]
     Indication: ASTHMA
     Dosage: 80/4.5 UG - 2 INHALATIONS TWICE DAILY
     Route: 055
     Dates: start: 20070101
  3. SPIRIVA [Concomitant]
  4. ALBUTEROL [Concomitant]
  5. ZETIA [Concomitant]
  6. CRESTOR [Concomitant]
  7. ACTOPLUS [Concomitant]
  8. LISINOPRIL [Concomitant]
  9. JANUVIA [Concomitant]
  10. AMARYL [Concomitant]
  11. CYMBALTA [Concomitant]
  12. WELLBUTRIN [Concomitant]

REACTIONS (1)
  - PANCREATITIS [None]
